FAERS Safety Report 9234453 (Version 1)
Quarter: 2013Q2

REPORT INFORMATION
  Report Type: Spontaneous
  Country: US (occurrence: US)
  Receive Date: 20130416
  Receipt Date: 20130416
  Transmission Date: 20140414
  Serious: No
  Sender: FDA-Public Use
  Company Number: US-BANPHARM-20120059

PATIENT
  Age: 63 Year
  Sex: Male
  Weight: 84.09 kg

DRUGS (6)
  1. ALEVE LIQUID GELS 220 MG [Suspect]
     Dosage: 1DF, TWICE DAILY,
     Route: 048
     Dates: start: 20120801, end: 20120803
  2. ALLOPURINAL [Concomitant]
  3. COUMADIN [Concomitant]
  4. CRESTOR [Concomitant]
  5. SYNTHROID [Concomitant]
  6. METOPROLOL [Concomitant]

REACTIONS (1)
  - Local swelling [Recovered/Resolved]
